FAERS Safety Report 21047622 (Version 1)
Quarter: 2022Q3

REPORT INFORMATION
  Report Type: Spontaneous
  Country: US (occurrence: UA)
  Receive Date: 20220706
  Receipt Date: 20220706
  Transmission Date: 20221027
  Serious: Yes (Other)
  Sender: FDA-Public Use
  Company Number: US-NOVARTISPH-NVSC2022UA152129

PATIENT
  Age: 49 Year
  Sex: Female

DRUGS (21)
  1. PACLITAXEL [Suspect]
     Active Substance: PACLITAXEL
     Indication: Ovarian cancer stage III
     Dosage: 300 MG
     Route: 065
     Dates: start: 20190413
  2. PACLITAXEL [Suspect]
     Active Substance: PACLITAXEL
     Dosage: 300 MG
     Route: 065
     Dates: start: 20190507
  3. PACLITAXEL [Suspect]
     Active Substance: PACLITAXEL
     Dosage: 300 MG
     Route: 065
     Dates: end: 201909
  4. CARBOPLATIN [Suspect]
     Active Substance: CARBOPLATIN
     Indication: Ovarian cancer stage III
     Dosage: 600 MG OD
     Route: 065
     Dates: start: 20190413
  5. CARBOPLATIN [Suspect]
     Active Substance: CARBOPLATIN
     Dosage: 600 MG OD
     Route: 042
     Dates: start: 20190507
  6. CARBOPLATIN [Suspect]
     Active Substance: CARBOPLATIN
     Dosage: 450 MG
     Route: 042
     Dates: end: 201909
  7. GEMCITABINE [Suspect]
     Active Substance: GEMCITABINE
     Indication: Ovarian cancer stage III
     Dosage: 4000 MG
     Route: 065
     Dates: start: 20200603
  8. GEMCITABINE [Suspect]
     Active Substance: GEMCITABINE
     Dosage: 4000 MG
     Route: 065
     Dates: start: 20200623
  9. GEMCITABINE [Suspect]
     Active Substance: GEMCITABINE
     Dosage: 3600 MG
     Route: 065
     Dates: start: 20200717, end: 20200801
  10. CISPLATIN [Suspect]
     Active Substance: CISPLATIN
     Indication: Ovarian cancer stage III
     Dosage: 50 MG
     Route: 065
  11. ZOLEDRONIC ACID [Suspect]
     Active Substance: ZOLEDRONIC ACID
     Indication: Product used for unknown indication
     Dosage: 4 MG
     Route: 042
     Dates: start: 20200326
  12. ZOLEDRONIC ACID [Suspect]
     Active Substance: ZOLEDRONIC ACID
     Dosage: 4 MG
     Route: 042
     Dates: start: 20200422
  13. ZOLEDRONIC ACID [Suspect]
     Active Substance: ZOLEDRONIC ACID
     Dosage: 4 MG
     Route: 042
     Dates: start: 20200513
  14. ZOLEDRONIC ACID [Suspect]
     Active Substance: ZOLEDRONIC ACID
     Dosage: 4 MG
     Route: 042
     Dates: start: 20200603
  15. ZOLEDRONIC ACID [Suspect]
     Active Substance: ZOLEDRONIC ACID
     Dosage: 4 MG
     Route: 042
     Dates: start: 20200623
  16. ZOLEDRONIC ACID [Suspect]
     Active Substance: ZOLEDRONIC ACID
     Dosage: 4 MG
     Route: 065
     Dates: start: 20200713, end: 20200801
  17. ZOLEDRONIC ACID [Suspect]
     Active Substance: ZOLEDRONIC ACID
     Dosage: 4 MG, Q4W
     Route: 042
     Dates: start: 20200831
  18. ZOLEDRONIC ACID [Suspect]
     Active Substance: ZOLEDRONIC ACID
     Dosage: 4 MG
     Route: 065
     Dates: start: 20211130
  19. MITOXANTRONE [Suspect]
     Active Substance: MITOXANTRONE HYDROCHLORIDE
     Indication: Product used for unknown indication
     Dosage: 20 MG
     Route: 065
     Dates: start: 20210910
  20. MITOXANTRONE [Suspect]
     Active Substance: MITOXANTRONE HYDROCHLORIDE
     Dosage: 20 MG
     Route: 065
     Dates: start: 20211101
  21. MITOXANTRONE [Suspect]
     Active Substance: MITOXANTRONE HYDROCHLORIDE
     Dosage: 20 MG
     Route: 065
     Dates: start: 20211130

REACTIONS (2)
  - Malignant peritoneal neoplasm [Unknown]
  - Ascites [Unknown]

NARRATIVE: CASE EVENT DATE: 20200203
